FAERS Safety Report 16775405 (Version 1)
Quarter: 2019Q3

REPORT INFORMATION
  Report Type: Spontaneous
  Country: US (occurrence: US)
  Receive Date: 20190905
  Receipt Date: 20190905
  Transmission Date: 20191005
  Serious: Yes (Other)
  Sender: FDA-Public Use
  Company Number: US-GLENMARK PHARMACEUTICALS-2019GMK042960

PATIENT

DRUGS (1)
  1. MUPIROCIN OINTMENT USP, 2% [Suspect]
     Active Substance: MUPIROCIN
     Indication: WOUND
     Dosage: UNK, BID
     Route: 061
     Dates: start: 20190812, end: 20190815

REACTIONS (5)
  - Condition aggravated [Recovering/Resolving]
  - Suspected product contamination [Unknown]
  - Wound infection [Recovering/Resolving]
  - Drug ineffective for unapproved indication [Unknown]
  - Poor quality product administered [Unknown]

NARRATIVE: CASE EVENT DATE: 201908
